FAERS Safety Report 15129229 (Version 1)
Quarter: 2018Q3

REPORT INFORMATION
  Report Type: Spontaneous
  Country: US (occurrence: US)
  Receive Date: 20180711
  Receipt Date: 20180711
  Transmission Date: 20181010
  Serious: No
  Sender: FDA-Public Use
  Company Number: US-PFIZER INC-2018278236

PATIENT
  Age: 60 Year
  Sex: Female

DRUGS (1)
  1. SUTENT [Suspect]
     Active Substance: SUNITINIB MALATE
     Indication: RENAL CELL CARCINOMA
     Dosage: UNK

REACTIONS (7)
  - Fatigue [Unknown]
  - Pruritus [Unknown]
  - Pain in extremity [Unknown]
  - Thyroid disorder [Unknown]
  - Madarosis [Unknown]
  - Glossodynia [Unknown]
  - Blister [Unknown]
